FAERS Safety Report 5581538-0 (Version None)
Quarter: 2008Q1

REPORT INFORMATION
  Report Type: 
  Country: None (occurrence: None)
  Receive Date: 20080103
  Receipt Date: 20080103
  Transmission Date: 20080703
  Serious: Yes (Other)
  Sender: FDA-Public Use
  Company Number: None

PATIENT
  Age: 31 Year
  Sex: Male
  Weight: 74.8435 kg

DRUGS (2)
  1. LEVAQUIN [Suspect]
     Indication: SINUSITIS
     Dosage: 750 MG ONCE A DAY PO
     Route: 048
     Dates: start: 20070526, end: 20070723
  2. METHYLPRED [Concomitant]

REACTIONS (11)
  - ARTHRALGIA [None]
  - BALANCE DISORDER [None]
  - IMPAIRED WORK ABILITY [None]
  - LABYRINTHITIS [None]
  - MUSCULOSKELETAL PAIN [None]
  - PAIN IN EXTREMITY [None]
  - PLANTAR FASCIITIS [None]
  - TENDONITIS [None]
  - TINNITUS [None]
  - VERTIGO [None]
  - VISION BLURRED [None]
